FAERS Safety Report 12183713 (Version 3)
Quarter: 2016Q2

REPORT INFORMATION
  Report Type: Spontaneous
  Country: US (occurrence: US)
  Receive Date: 20160316
  Receipt Date: 20160513
  Transmission Date: 20160815
  Serious: Yes (Other)
  Sender: FDA-Public Use
  Company Number: US-PFIZER INC-2016155309

PATIENT
  Age: 46 Year
  Sex: Female
  Weight: 100.2 kg

DRUGS (5)
  1. LYRICA [Suspect]
     Active Substance: PREGABALIN
     Indication: PAIN
     Dosage: 50 MG, 2X/DAY
     Route: 048
     Dates: start: 20160119, end: 20160307
  2. TOPAMAX [Concomitant]
     Active Substance: TOPIRAMATE
     Indication: PROPHYLAXIS
     Dosage: 100 MG, 2X/DAY
     Dates: start: 2000
  3. OXYCODONE [Concomitant]
     Active Substance: OXYCODONE
     Indication: PAIN
     Dosage: 7.5/325 MG, 4X/DAY
     Dates: start: 2011
  4. METHADONE [Concomitant]
     Active Substance: METHADONE HYDROCHLORIDE
     Indication: PAIN
     Dosage: 5 MG, 3X/DAY
     Dates: start: 2015
  5. LYRICA [Suspect]
     Active Substance: PREGABALIN
     Indication: NEURALGIA

REACTIONS (7)
  - Dry eye [Recovering/Resolving]
  - Feeling abnormal [Recovered/Resolved]
  - Irritability [Recovered/Resolved]
  - Vision blurred [Recovered/Resolved]
  - Headache [Not Recovered/Not Resolved]
  - Pain [Not Recovered/Not Resolved]
  - Condition aggravated [Not Recovered/Not Resolved]

NARRATIVE: CASE EVENT DATE: 20160226
